FAERS Safety Report 5072704-1 (Version None)
Quarter: 2006Q3

REPORT INFORMATION
  Report Type: 
  Country: None (occurrence: None)
  Receive Date: 20060807
  Receipt Date: 20060727
  Transmission Date: 20061208
  Serious: Yes (Life-Threatening)
  Sender: FDA-Public Use
  Company Number: FR-AVENTIS-200612665FR

PATIENT
  Age: 74 Year
  Sex: Male

DRUGS (4)
  1. ANANDRON [Suspect]
     Indication: PROSTATE CANCER
     Route: 048
     Dates: start: 20060118, end: 20060403
  2. ASPIRIN [Concomitant]
     Route: 048
  3. EUPANTOL [Concomitant]
     Route: 048
  4. MICARDIS [Concomitant]
     Route: 048

REACTIONS (2)
  - INTERSTITIAL LUNG DISEASE [None]
  - RESPIRATORY FAILURE [None]
